FAERS Safety Report 14155162 (Version 1)
Quarter: 2017Q4

REPORT INFORMATION
  Report Type: Report from Study
  Country: US (occurrence: US)
  Receive Date: 20171103
  Receipt Date: 20171103
  Transmission Date: 20180321
  Serious: Yes (Death, Hospitalization, Other)
  Sender: FDA-Public Use
  Company Number: US-ROCHE-1953049

PATIENT

DRUGS (14)
  1. FOSCARNET [Suspect]
     Active Substance: FOSCARNET
     Indication: ANTIVIRAL PROPHYLAXIS
     Route: 042
  2. GANCICLOVIR. [Suspect]
     Active Substance: GANCICLOVIR
     Indication: ANTIVIRAL PROPHYLAXIS
     Route: 042
  3. MYCOPHENOLATE MOFETIL. [Suspect]
     Active Substance: MYCOPHENOLATE MOFETIL
     Indication: PROPHYLAXIS AGAINST GRAFT VERSUS HOST DISEASE
     Dosage: PER DOSE
     Route: 042
  4. SULFAMETHOXAZOLE/TRIMETHOPRIM [Concomitant]
     Active Substance: SULFAMETHOXAZOLE\TRIMETHOPRIM
     Dosage: 3 TIMES A WEEK
     Route: 048
  5. FILGRASTIM [Concomitant]
     Active Substance: FILGRASTIM
     Route: 042
  6. MYCOPHENOLATE MOFETIL. [Suspect]
     Active Substance: MYCOPHENOLATE MOFETIL
     Route: 048
  7. LIPOSOMAL AMPHOTERICIN B [Suspect]
     Active Substance: AMPHOTERICIN B
     Indication: ANTIFUNGAL PROPHYLAXIS
     Route: 042
  8. SULFAMETHOXAZOLE/TRIMETHOPRIM [Concomitant]
     Active Substance: SULFAMETHOXAZOLE\TRIMETHOPRIM
     Indication: ANTIFUNGAL PROPHYLAXIS
     Route: 065
  9. TACROLIMUS. [Suspect]
     Active Substance: TACROLIMUS
     Indication: PROPHYLAXIS AGAINST GRAFT VERSUS HOST DISEASE
     Route: 042
  10. TACROLIMUS. [Suspect]
     Active Substance: TACROLIMUS
     Dosage: IN DIVIDED DOSES
     Route: 048
  11. VANCOMYCIN [Suspect]
     Active Substance: VANCOMYCIN
     Indication: PRODUCT USED FOR UNKNOWN INDICATION
     Route: 065
  12. PENTAMIDINE [Concomitant]
     Active Substance: PENTAMIDINE
     Route: 042
  13. ACYCLOVIR. [Concomitant]
     Active Substance: ACYCLOVIR
     Indication: ANTIVIRAL PROPHYLAXIS
     Route: 042
  14. SARGRAMOSTIM [Concomitant]
     Active Substance: SARGRAMOSTIM
     Route: 042

REACTIONS (8)
  - Adenovirus infection [Fatal]
  - Mucosal inflammation [Unknown]
  - Hypokalaemia [Unknown]
  - Nephropathy toxic [Unknown]
  - Hyperkalaemia [Unknown]
  - Multiple organ dysfunction syndrome [Fatal]
  - Nosocomial infection [Unknown]
  - Hypomagnesaemia [Unknown]
